FAERS Safety Report 15190149 (Version 2)
Quarter: 2018Q3

REPORT INFORMATION
  Report Type: Report from Study
  Country: SI (occurrence: SI)
  Receive Date: 20180724
  Receipt Date: 20180809
  Transmission Date: 20181010
  Serious: Yes (Hospitalization, Other)
  Sender: FDA-Public Use
  Company Number: SI-BAYER-2018-114446

PATIENT
  Age: 67 Year
  Sex: Male

DRUGS (5)
  1. STIVARGA [Suspect]
     Active Substance: REGORAFENIB
     Indication: HEPATOCELLULAR CARCINOMA
     Dosage: UNK
     Dates: start: 20180606, end: 20180710
  2. LASIX [Concomitant]
     Active Substance: FUROSEMIDE
     Dosage: 40 MG
  3. FRAGMIN [Concomitant]
     Active Substance: DALTEPARIN SODIUM
     Dosage: 5000I.E./24 HOUR
  4. ANALGIN [Concomitant]
     Dosage: 500 MG
  5. LANITOP [Concomitant]
     Active Substance: METILDIGOXIN
     Dosage: 1 TBL,YOL 2,5 MG TBL

REACTIONS (10)
  - Dyspnoea exertional [Not Recovered/Not Resolved]
  - Cardiac failure [Not Recovered/Not Resolved]
  - Insomnia [Recovering/Resolving]
  - Oedema [None]
  - Fatigue [Recovering/Resolving]
  - Pleural effusion [None]
  - Bacterial infection [Not Recovered/Not Resolved]
  - Congestive cardiomyopathy [None]
  - Cardiomegaly [None]
  - Tachycardia [Not Recovered/Not Resolved]

NARRATIVE: CASE EVENT DATE: 2018
